FAERS Safety Report 10260776 (Version 3)
Quarter: 2014Q3

REPORT INFORMATION
  Report Type: Spontaneous
  Country: GB (occurrence: GB)
  Receive Date: 20140626
  Receipt Date: 20140929
  Transmission Date: 20150326
  Serious: Yes (Other)
  Sender: FDA-Public Use
  Company Number: GB-ROCHE-1424799

PATIENT
  Age: 81 Year
  Sex: Female

DRUGS (17)
  1. ROACTEMRA [Suspect]
     Active Substance: TOCILIZUMAB
     Dosage: 8MG/KG
     Route: 041
     Dates: start: 20120217
  2. SIMVASTATIN. [Concomitant]
     Active Substance: SIMVASTATIN
     Dosage: DOSE- 10 MG OON
     Route: 048
  3. BUPRENORPHINE [Concomitant]
     Active Substance: BUPRENORPHINE
     Route: 062
  4. ROACTEMRA [Suspect]
     Active Substance: TOCILIZUMAB
     Dosage: 8MG/KG
     Route: 041
     Dates: start: 20140425
  5. ROACTEMRA [Suspect]
     Active Substance: TOCILIZUMAB
     Dosage: 8MG/KG
     Route: 041
     Dates: start: 20140523
  6. ROACTEMRA [Suspect]
     Active Substance: TOCILIZUMAB
     Indication: RHEUMATOID ARTHRITIS
     Dosage: 80MG/4ML SOLUTION
     Route: 041
     Dates: start: 20120106
  7. LISINOPRIL. [Concomitant]
     Active Substance: LISINOPRIL
     Route: 048
  8. AMLODIPINE [Concomitant]
     Active Substance: AMLODIPINE BESYLATE
     Route: 048
  9. ROACTEMRA [Suspect]
     Active Substance: TOCILIZUMAB
     Dosage: 8MG/KG
     Route: 041
     Dates: start: 20140328
  10. PARACETAMOL [Concomitant]
     Active Substance: ACETAMINOPHEN
     Dosage: DOSE: 1-2 QDS IN EVENING
     Route: 051
  11. CLENIL MODULITE [Concomitant]
     Active Substance: BECLOMETHASONE DIPROPIONATE
     Dosage: DOSE: 2 PUFFS BD
     Route: 050
  12. RANITIDINE [Concomitant]
     Active Substance: RANITIDINE\RANITIDINE HYDROCHLORIDE
     Route: 048
  13. ROACTEMRA [Suspect]
     Active Substance: TOCILIZUMAB
     Dosage: 400MG/20ML SOLUTION
     Route: 041
     Dates: start: 20120203
  14. ROACTEMRA [Suspect]
     Active Substance: TOCILIZUMAB
     Dosage: 8MG/KG
     Route: 041
     Dates: start: 20140228
  15. ALENDRONIC ACID [Concomitant]
     Active Substance: ALENDRONIC ACID
     Route: 048
  16. VENTOLIN [Concomitant]
     Active Substance: ALBUTEROL SULFATE
     Dosage: DOSE: 1 PUF PRN
     Route: 050
  17. CALCIUM CARBONATE/ERGOCALCIFEROL [Concomitant]
     Dosage: ERGOCALCIFEROL CCALCIUM CARBONATE 400MG / ERGOCALCIFEROL 2.5MICROGRAM
     Route: 048

REACTIONS (6)
  - Carotid artery stenosis [Unknown]
  - Hemianopia [Recovered/Resolved]
  - Scintillating scotoma [Recovered/Resolved]
  - Blindness [Unknown]
  - Visual acuity reduced [Unknown]
  - Migraine with aura [Recovered/Resolved]

NARRATIVE: CASE EVENT DATE: 20140521
